FAERS Safety Report 10140167 (Version 2)
Quarter: 2015Q1

REPORT INFORMATION
  Report Type: Other
  Country: US (occurrence: US)
  Receive Date: 20140429
  Receipt Date: 20150213
  Transmission Date: 20150720
  Serious: Yes (Hospitalization, Other)
  Sender: FDA-Public Use
  Company Number: US-GSKPPD-2014GSK038791

PATIENT
  Age: 75 Year
  Sex: Female

DRUGS (2)
  1. LOPRESSOR [Concomitant]
     Active Substance: METOPROLOL TARTRATE
     Dosage: TREATMENT MEDICATION
     Route: 042
  2. AVANDIA [Suspect]
     Active Substance: ROSIGLITAZONE MALEATE
     Indication: DIABETES MELLITUS
     Dosage: AVANDIA WAS NOT LISTED AMONG THE PATIENTS RECORDS REVIEWED.
     Route: 048

REACTIONS (3)
  - Myocardial infarction [Unknown]
  - Atrial fibrillation [Unknown]
  - Cardiac arrest [Unknown]

NARRATIVE: CASE EVENT DATE: 20060709
